FAERS Safety Report 22799614 (Version 2)
Quarter: 2023Q4

REPORT INFORMATION
  Report Type: Spontaneous
  Country: US (occurrence: US)
  Receive Date: 20230808
  Receipt Date: 20231123
  Transmission Date: 20240109
  Serious: Yes (Other)
  Sender: FDA-Public Use
  Company Number: US-JAZZ PHARMACEUTICALS-2023-US-016451

PATIENT
  Age: 19 Year

DRUGS (2)
  1. SODIUM OXYBATE [Suspect]
     Active Substance: SODIUM OXYBATE
     Indication: Narcolepsy
     Dosage: ONE-HALF THE NIGHTLY DOSE
  2. SODIUM OXYBATE [Suspect]
     Active Substance: SODIUM OXYBATE
     Indication: Cataplexy
     Dosage: SECOND NIGHTLY DOSE OF FOUR GRAMS

REACTIONS (3)
  - Acute respiratory failure [Recovering/Resolving]
  - Unresponsive to stimuli [Recovering/Resolving]
  - Inappropriate schedule of product administration [Unknown]
